FAERS Safety Report 9918865 (Version 2)
Quarter: 2014Q1

REPORT INFORMATION
  Report Type: Spontaneous
  Country: US (occurrence: US)
  Receive Date: 20140224
  Receipt Date: 20140320
  Transmission Date: 20141002
  Serious: Yes (Other)
  Sender: FDA-Public Use
  Company Number: US-BAYER-2014-027610

PATIENT
  Age: 27 Year
  Sex: Female
  Weight: 87.53 kg

DRUGS (1)
  1. MIRENA [Suspect]
     Indication: CONTRACEPTION
     Dosage: 20 MCG/24HR, CONT
     Route: 015
     Dates: start: 20090623, end: 20120113

REACTIONS (10)
  - Embedded device [None]
  - Device issue [None]
  - Abdominal pain lower [None]
  - Procedural pain [None]
  - Scar [None]
  - Emotional distress [None]
  - Injury [None]
  - Pain [None]
  - Menorrhagia [None]
  - Dyspareunia [None]
